FAERS Safety Report 6597730-2 (Version None)
Quarter: 2010Q1

REPORT INFORMATION
  Report Type: 
  Country: None (occurrence: None)
  Receive Date: 20100223
  Receipt Date: 20100212
  Transmission Date: 20100710
  Serious: Yes (Hospitalization)
  Sender: FDA-Public Use
  Company Number: FR-B.I. PHARMACEUTICALS,INC./RIDGEFIELD-2010-DE-01143BY

PATIENT
  Age: 63 Year
  Sex: Female

DRUGS (16)
  1. PRITOR PLUS [Suspect]
     Indication: DRUG USE FOR UNKNOWN INDICATION
     Dosage: 1 ANZ
     Route: 048
     Dates: end: 20091027
  2. BI PROFENID [Suspect]
     Indication: DRUG USE FOR UNKNOWN INDICATION
     Route: 048
     Dates: start: 20091025, end: 20091027
  3. STAGID [Suspect]
     Indication: DRUG USE FOR UNKNOWN INDICATION
     Dosage: 2100 MG
     Route: 048
     Dates: end: 20091027
  4. AMLOR [Concomitant]
  5. DIFFU K [Concomitant]
     Route: 065
  6. NOVONORM [Concomitant]
     Route: 065
  7. LANTUS [Concomitant]
     Route: 065
  8. EFFEXOR [Concomitant]
     Route: 065
  9. SPASFON-LYOC [Concomitant]
     Route: 065
  10. LYSANXIA [Concomitant]
     Route: 065
  11. BRONCHODUAL [Concomitant]
     Route: 065
  12. MOXYDAR [Concomitant]
     Route: 065
  13. IXPRIM [Concomitant]
     Route: 065
     Dates: start: 20091025
  14. NEXIUM [Concomitant]
     Route: 065
     Dates: start: 20091025
  15. TAHOR [Concomitant]
     Route: 065
  16. GLUCOR [Concomitant]
     Route: 065

REACTIONS (4)
  - BLOOD CREATINE INCREASED [None]
  - HYPOKALAEMIA [None]
  - HYPONATRAEMIA [None]
  - RENAL FAILURE ACUTE [None]
